FAERS Safety Report 9759611 (Version 1)
Quarter: 2013Q4

REPORT INFORMATION
  Report Type: Spontaneous
  Country: US (occurrence: US)
  Receive Date: 20131216
  Receipt Date: 20131216
  Transmission Date: 20140711
  Serious: No
  Sender: FDA-Public Use
  Company Number: US-GILEAD-2010-0028257

PATIENT
  Sex: Female

DRUGS (9)
  1. LETAIRIS [Suspect]
     Indication: PULMONARY ARTERIAL HYPERTENSION
     Route: 048
     Dates: end: 20100327
  2. EXFORGE [Concomitant]
  3. TEKTURNA [Concomitant]
  4. ATROVENT [Concomitant]
  5. ADVAIR DISKUS [Concomitant]
  6. PROAIR HFA [Concomitant]
  7. ZOLOFT [Concomitant]
  8. PRILOSEC [Concomitant]
  9. MECLIZINE HCL [Concomitant]

REACTIONS (4)
  - Insomnia [Recovered/Resolved]
  - Vasodilatation [Recovered/Resolved]
  - Flushing [Recovered/Resolved]
  - Dyspnoea [Recovered/Resolved]
